FAERS Safety Report 21164623 (Version 2)
Quarter: 2025Q2

REPORT INFORMATION
  Report Type: Report from Study
  Country: DE (occurrence: DE)
  Receive Date: 20220803
  Receipt Date: 20250416
  Transmission Date: 20250717
  Serious: Yes (Life-Threatening, Hospitalization)
  Sender: ABBVIE
  Company Number: DE-ABBVIE-22K-062-4490894-00

PATIENT
  Age: 65 Year
  Sex: Female

DRUGS (2)
  1. RINVOQ [Suspect]
     Active Substance: UPADACITINIB
     Indication: Rheumatoid arthritis
     Route: 048
     Dates: start: 202203, end: 20220602
  2. ERELZI [Suspect]
     Active Substance: ETANERCEPT-SZZS
     Indication: Product used for unknown indication
     Route: 065
     Dates: start: 202302, end: 202409

REACTIONS (2)
  - Transitional cell carcinoma recurrent [Recovered/Resolved]
  - Transitional cell cancer of the renal pelvis and ureter localised [Recovered/Resolved]

NARRATIVE: CASE EVENT DATE: 20220406
